FAERS Safety Report 5724589-5 (Version None)
Quarter: 2008Q2

REPORT INFORMATION
  Report Type: 
  Country: None (occurrence: None)
  Receive Date: 20080501
  Receipt Date: 20080423
  Transmission Date: 20081010
  Serious: Yes (Other)
  Sender: FDA-Public Use
  Company Number: BE-JNJFOC-20080404294

PATIENT
  Sex: Female

DRUGS (1)
  1. CAELYX [Suspect]
     Indication: BREAST CANCER METASTATIC
     Dosage: EVENT OCCURRED DURING THE 3RD CYCLE OF TREATMENT
     Route: 042

REACTIONS (2)
  - SKIN DISORDER [None]
  - SKIN TOXICITY [None]
